FAERS Safety Report 19536279 (Version 1)
Quarter: 2021Q3

REPORT INFORMATION
  Report Type: Spontaneous
  Country: US (occurrence: US)
  Receive Date: 20210714
  Receipt Date: 20210714
  Transmission Date: 20211014
  Serious: Yes (Hospitalization, Disabling, Other)
  Sender: FDA-Public Use
  Company Number: None

PATIENT
  Age: 68 Year
  Sex: Female
  Weight: 96.75 kg

DRUGS (11)
  1. BENADRYL [Concomitant]
     Active Substance: DIPHENHYDRAMINE HYDROCHLORIDE
  2. FAMOTIDINE. [Concomitant]
     Active Substance: FAMOTIDINE
  3. VIT D [Concomitant]
     Active Substance: VITAMIN D NOS
  4. ALVECSCO MDI [Concomitant]
  5. TYLENOL ARTHRITIC [Concomitant]
  6. NUCALA [Suspect]
     Active Substance: MEPOLIZUMAB
     Indication: ASTHMA
     Dates: start: 20210217, end: 20210421
  7. PAXIL [Concomitant]
     Active Substance: PAROXETINE HYDROCHLORIDE
  8. VENTOLIN [Concomitant]
     Active Substance: ALBUTEROL SULFATE
  9. HTC [Concomitant]
     Active Substance: HYDROCHLOROTHIAZIDE
  10. CYTOMEL [Concomitant]
     Active Substance: LIOTHYRONINE SODIUM
  11. LOSARTAN. [Concomitant]
     Active Substance: LOSARTAN

REACTIONS (7)
  - Allergy test positive [None]
  - Headache [None]
  - Arthralgia [None]
  - Bone marrow oedema [None]
  - Seasonal allergy [None]
  - Bursitis [None]
  - Reaction to excipient [None]

NARRATIVE: CASE EVENT DATE: 20210217
